FAERS Safety Report 4419199-6 (Version None)
Quarter: 2004Q3

REPORT INFORMATION
  Report Type: 
  Country: None (occurrence: None)
  Receive Date: 20040809
  Receipt Date: 20040119
  Transmission Date: 20050211
  Serious: No
  Sender: FDA-Public Use
  Company Number: US-GLAXOSMITHKLINE-A0493937A

PATIENT
  Age: 44 Year
  Sex: Male

DRUGS (3)
  1. PAXIL [Suspect]
     Indication: PANIC DISORDER
     Dosage: 40MG PER DAY
     Route: 048
     Dates: start: 19960101, end: 20030101
  2. OXYCONTIN [Concomitant]
  3. XANAX [Concomitant]

REACTIONS (2)
  - DRUG INEFFECTIVE [None]
  - LIBIDO DECREASED [None]
